FAERS Safety Report 9447394 (Version 1)
Quarter: 2013Q3

REPORT INFORMATION
  Report Type: Spontaneous
  Country: LB (occurrence: LB)
  Receive Date: 20130808
  Receipt Date: 20130808
  Transmission Date: 20140515
  Serious: Yes (Death, Other)
  Sender: FDA-Public Use
  Company Number: LB-PFIZER INC-2013226441

PATIENT
  Sex: Female

DRUGS (6)
  1. CARBOPLATIN [Suspect]
     Indication: MEDULLOBLASTOMA
     Dosage: CYCLIC
  2. ETOPOSIDE [Suspect]
     Indication: MEDULLOBLASTOMA
     Dosage: CYCLIC
  3. METHOTREXATE SODIUM [Suspect]
     Indication: MEDULLOBLASTOMA
     Dosage: CYCLIC
  4. METHOTREXATE SODIUM [Suspect]
     Dosage: CYCLIC, INTRA-VENTRICULAR
  5. CYCLOPHOSPHAMIDE [Suspect]
     Indication: MEDULLOBLASTOMA
     Dosage: CYCLIC
  6. VINCRISTINE [Suspect]
     Indication: MEDULLOBLASTOMA
     Dosage: CYCLIC

REACTIONS (5)
  - Septic shock [Fatal]
  - Bone marrow failure [Not Recovered/Not Resolved]
  - Gastrointestinal necrosis [Not Recovered/Not Resolved]
  - Pancytopenia [Not Recovered/Not Resolved]
  - Pyrexia [Not Recovered/Not Resolved]
